FAERS Safety Report 23590840 (Version 1)
Quarter: 2024Q1

REPORT INFORMATION
  Report Type: Spontaneous
  Country: ZA (occurrence: ZA)
  Receive Date: 20240304
  Receipt Date: 20240304
  Transmission Date: 20240410
  Serious: Yes (Hospitalization)
  Sender: FDA-Public Use
  Company Number: ZA-LUPIN PHARMACEUTICALS INC.-2024-01599

PATIENT

DRUGS (12)
  1. AMLODIPINE BESYLATE [Suspect]
     Active Substance: AMLODIPINE BESYLATE
     Indication: Hypertension
     Dosage: 5 MILLIGRAM, QD (DAILY)
     Route: 048
  2. BISOPROLOL FUMARATE [Suspect]
     Active Substance: BISOPROLOL FUMARATE
     Indication: Hypertension
     Dosage: 5 MILLIGRAM, QD (DAILY)
     Route: 048
  3. METHOTREXATE SODIUM [Suspect]
     Active Substance: METHOTREXATE SODIUM
     Indication: Rheumatoid arthritis
     Dosage: 4 DOSAGE FORM, QW
     Route: 048
  4. CHLOROQUINE SULFATE [Suspect]
     Active Substance: CHLOROQUINE SULFATE
     Indication: Rheumatoid arthritis
     Dosage: 1 DOSAGE FORM (ONE TABLET MONDAY TO FRIDAY)
     Route: 048
  5. FOLIC ACID [Suspect]
     Active Substance: FOLIC ACID
     Indication: Supplementation therapy
     Dosage: 5 MILLIGRAM, QD (DAILY)
     Route: 048
  6. ZOLPIDEM TARTRATE [Suspect]
     Active Substance: ZOLPIDEM TARTRATE
     Indication: Insomnia
     Dosage: 10 MILLIGRAM, QD (DAILY)
     Route: 048
  7. GEMFIBROZIL [Suspect]
     Active Substance: GEMFIBROZIL
     Indication: Blood cholesterol abnormal
     Dosage: 20 MILLIGRAM, QD (DAILY)
     Route: 048
  8. PERINDOPRIL [Suspect]
     Active Substance: PERINDOPRIL
     Indication: Hypertension
     Dosage: 10 MILLIGRAM, QD (DAILY)
     Route: 048
     Dates: end: 202401
  9. PERINDOPRIL [Suspect]
     Active Substance: PERINDOPRIL
     Dosage: 5 MILLIGRAM, QD (DAILY)
     Route: 048
     Dates: start: 202401
  10. ERGOCALCIFEROL [Suspect]
     Active Substance: ERGOCALCIFEROL
     Indication: Vitamin D deficiency
     Dosage: 1 DOSAGE FORM, QW
     Route: 048
     Dates: start: 202401
  11. ALLOPURINOL [Suspect]
     Active Substance: ALLOPURINOL
     Indication: Prophylaxis
     Dosage: 100 MILLIGRAM, QD (DAILY)
     Route: 048
  12. ACETAMINOPHEN\CODEINE PHOSPHATE\MEPROBAMATE [Suspect]
     Active Substance: ACETAMINOPHEN\CODEINE PHOSPHATE\MEPROBAMATE
     Indication: Pain
     Dosage: 2 DOSAGE FORM, QD (TAKE TWO TABLETS DAILY)
     Route: 048

REACTIONS (2)
  - Blood pressure abnormal [Unknown]
  - Inflammation [Unknown]
